FAERS Safety Report 12890442 (Version 1)
Quarter: 2016Q4

REPORT INFORMATION
  Report Type: Spontaneous
  Country: US (occurrence: US)
  Receive Date: 20161027
  Receipt Date: 20161027
  Transmission Date: 20170207
  Serious: No
  Sender: FDA-Public Use
  Company Number: US-JAZZ-2016-US-015581

PATIENT
  Sex: Female

DRUGS (18)
  1. INDERAL [Concomitant]
     Active Substance: PROPRANOLOL HYDROCHLORIDE
  2. MAGNESIUM [Concomitant]
     Active Substance: MAGNESIUM
  3. EXCEDRIN EXTRA STRENGTH [Concomitant]
     Active Substance: ACETAMINOPHEN\ASPIRIN\CAFFEINE
  4. XYREM [Suspect]
     Active Substance: SODIUM OXYBATE
     Indication: FIBROMYALGIA
     Dosage: 2.25 G, BID
     Route: 048
     Dates: start: 201001, end: 201001
  5. XYREM [Suspect]
     Active Substance: SODIUM OXYBATE
     Dosage: DOSE ADJUSTMENTS
     Route: 048
     Dates: start: 201001, end: 201002
  6. RESTASIS [Concomitant]
     Active Substance: CYCLOSPORINE
  7. WELLNESS [Concomitant]
  8. MOTRIN [Concomitant]
     Active Substance: IBUPROFEN
  9. DEXILANT [Concomitant]
     Active Substance: DEXLANSOPRAZOLE
  10. XYREM [Suspect]
     Active Substance: SODIUM OXYBATE
     Dosage: 2.5 G, BID
     Route: 048
     Dates: start: 201605
  11. CINNAMON. [Concomitant]
     Active Substance: CINNAMON
  12. FISH OIL [Concomitant]
     Active Substance: FISH OIL
  13. XANAX [Concomitant]
     Active Substance: ALPRAZOLAM
  14. CENTRUM [Concomitant]
     Active Substance: VITAMINS
  15. XYREM [Suspect]
     Active Substance: SODIUM OXYBATE
     Dosage: 4.5 G, BID
     Route: 048
     Dates: start: 201002, end: 2012
  16. XYREM [Suspect]
     Active Substance: SODIUM OXYBATE
     Dosage: 4.25 G, BID
     Route: 048
     Dates: start: 201308, end: 201309
  17. GLUCOSAMINE [Concomitant]
     Active Substance: GLUCOSAMINE
  18. XYREM [Suspect]
     Active Substance: SODIUM OXYBATE
     Dosage: DOSE ADJUSTMENTS
     Dates: start: 201309, end: 201605

REACTIONS (5)
  - Pain [Not Recovered/Not Resolved]
  - Dry mouth [Not Recovered/Not Resolved]
  - Overweight [Not Recovered/Not Resolved]
  - Headache [Unknown]
  - Unevaluable event [Unknown]
